FAERS Safety Report 18347955 (Version 2)
Quarter: 2021Q4

REPORT INFORMATION
  Report Type: Spontaneous
  Country: US (occurrence: US)
  Receive Date: 20201006
  Receipt Date: 20211124
  Transmission Date: 20220304
  Serious: Yes (Other)
  Sender: FDA-Public Use
  Company Number: US-SAARTEMIS-SAC202010010176

PATIENT
  Age: 36 Year
  Sex: Female

DRUGS (2)
  1. ZANTAC [Suspect]
     Active Substance: RANITIDINE HYDROCHLORIDE
     Indication: Dyspepsia
     Dosage: 75 MG, QD
     Dates: start: 200801
  2. ZANTAC [Suspect]
     Active Substance: RANITIDINE HYDROCHLORIDE
     Indication: Gastrooesophageal reflux disease
     Dosage: 150 MG, QD
     Dates: end: 201001

REACTIONS (10)
  - Renal cancer stage I [Unknown]
  - Lymphadenopathy [Unknown]
  - Pulmonary mass [Unknown]
  - Hepatomegaly [Unknown]
  - Chest wall mass [Unknown]
  - Hernia [Unknown]
  - Pain [Unknown]
  - Depression [Unknown]
  - Fall [Unknown]
  - Scar pain [Unknown]

NARRATIVE: CASE EVENT DATE: 20170301
